FAERS Safety Report 8602968 (Version 3)
Quarter: 2013Q2

REPORT INFORMATION
  Report Type: Report from Study
  Country: US (occurrence: US)
  Receive Date: 20120607
  Receipt Date: 20130620
  Transmission Date: 20140414
  Serious: Yes (Death, Life-Threatening, Hospitalization, Other)
  Sender: FDA-Public Use
  Company Number: PHHO2012US008459

PATIENT
  Age: 65 Year
  Sex: Female
  Weight: 150.55 kg

DRUGS (4)
  1. AFINITOR [Suspect]
     Indication: METASTATIC MALIGNANT MELANOMA
     Dosage: 5 MG, QW3 (M, W, F) ALL 4 WEEKS, REPEAT Q28 DAYS
     Route: 048
     Dates: start: 20120521, end: 20130523
  2. CARBOPLATIN [Suspect]
     Dosage: 5 AUC
     Route: 042
     Dates: end: 20130518
  3. BEVACIZUMAB [Suspect]
     Indication: METASTATIC MALIGNANT MELANOMA
     Dosage: 10 MG/KG, QD
     Route: 042
     Dates: start: 20120518, end: 20120518
  4. TAXOL [Suspect]
     Indication: METASTATIC MALIGNANT MELANOMA
     Dosage: 80 MG/M2, UNK
     Route: 042
     Dates: start: 20120518, end: 20120518

REACTIONS (5)
  - Sepsis [Fatal]
  - Diarrhoea [Fatal]
  - Neutropenia [Fatal]
  - Renal failure acute [Fatal]
  - Thrombocytopenia [Fatal]
